FAERS Safety Report 11393086 (Version 5)
Quarter: 2016Q1

REPORT INFORMATION
  Report Type: Spontaneous
  Country: JP (occurrence: JP)
  Receive Date: 20150818
  Receipt Date: 20160111
  Transmission Date: 20160525
  Serious: Yes (Death, Life-Threatening, Hospitalization, Other)
  Sender: FDA-Public Use
  Company Number: JP-GSKJP-JP2015JPN115751AA

PATIENT
  Age: 79 Year
  Sex: Male
  Weight: 65 kg

DRUGS (2)
  1. PREDNISOLONE. [Concomitant]
     Active Substance: PREDNISOLONE
     Dosage: 30 MG, 1D
  2. SAMITREL [Suspect]
     Active Substance: ATOVAQUONE
     Indication: ANTIFUNGAL PROPHYLAXIS
     Dosage: 750 MG, QD
     Route: 048
     Dates: start: 20150718, end: 20150729

REACTIONS (8)
  - Capillary leak syndrome [Fatal]
  - Clostridium difficile colitis [Fatal]
  - Leukopenia [Recovered/Resolved]
  - Pancytopenia [Fatal]
  - Oliguria [Unknown]
  - Altered state of consciousness [Unknown]
  - Disseminated intravascular coagulation [Unknown]
  - Asthenia [Unknown]

NARRATIVE: CASE EVENT DATE: 20150729
